FAERS Safety Report 6930391-9 (Version None)
Quarter: 2010Q3

REPORT INFORMATION
  Report Type: 
  Country: None (occurrence: None)
  Receive Date: 20100818
  Receipt Date: 20100809
  Transmission Date: 20110219
  Serious: Yes (Other)
  Sender: FDA-Public Use
  Company Number: GB-PFIZER INC-2010075639

PATIENT
  Age: 6 Year
  Sex: Male

DRUGS (3)
  1. ZITHROMAX [Suspect]
     Indication: INFECTION PROPHYLAXIS
     Dosage: 6.25 ML THREE TIMES WEEKLY
     Route: 048
     Dates: start: 20100430, end: 20100601
  2. OILATUM EMOLLIENT [Concomitant]
     Dosage: UNK
     Route: 061
  3. AQUEOUS CREAM [Concomitant]
     Dosage: UNK
     Route: 061

REACTIONS (1)
  - TOOTH DISCOLOURATION [None]
